FAERS Safety Report 9837380 (Version 1)
Quarter: 2013Q4

REPORT INFORMATION
  Report Type: Spontaneous
  Country: US (occurrence: None)
  Receive Date: 20131121
  Receipt Date: 20131121
  Transmission Date: 20140711
  Serious: No
  Sender: FDA-Public Use
  Company Number: 1000049974

PATIENT
  Age: 71 Year
  Sex: Female

DRUGS (1)
  1. TUDORZA PRESSAIR [Suspect]
     Indication: DYSPNOEA
     Dosage: 800 MCG (400 MCG, 2 IN 1 D), ORAL
     Route: 048
     Dates: start: 20130924

REACTIONS (3)
  - Anxiety [None]
  - Off label use [None]
  - Somnolence [None]
